FAERS Safety Report 15155678 (Version 1)
Quarter: 2018Q3

REPORT INFORMATION
  Report Type: Spontaneous
  Country: ES (occurrence: ES)
  Receive Date: 20180717
  Receipt Date: 20180717
  Transmission Date: 20181010
  Serious: Yes (Disabling, Other)
  Sender: FDA-Public Use
  Company Number: ES-MYLANLABS-2018M1050764

PATIENT
  Age: 40 Year
  Sex: Female

DRUGS (10)
  1. CALCIUM CARBONATE W/COLECALCIFEROL//02341401/ [Concomitant]
     Indication: POLYMYOSITIS
     Dosage: 2, DAY UNK
     Dates: start: 20110701
  2. IBANDRONATE MONOSODIUM MONOHYDRATE [Concomitant]
     Indication: ANTISYNTHETASE SYNDROME
  3. CICLOSPORIN [Concomitant]
     Active Substance: CYCLOSPORINE
     Indication: ANTISYNTHETASE SYNDROME
  4. METHYLPREDNISOLONE. [Interacting]
     Active Substance: METHYLPREDNISOLONE
     Indication: POLYMYOSITIS
     Dosage: 20 MG, QD
     Dates: start: 20110701
  5. ESCITALOPRAM [Concomitant]
     Active Substance: ESCITALOPRAM OXALATE
     Indication: DEPRESSION
     Dosage: 10 MG, QD
     Dates: start: 20110401
  6. CALCIUM CARBONATE W/COLECALCIFEROL//02341401/ [Concomitant]
     Indication: ANTISYNTHETASE SYNDROME
  7. CICLOSPORIN [Concomitant]
     Active Substance: CYCLOSPORINE
     Indication: POLYMYOSITIS
     Dosage: 100 MG, QD
     Dates: start: 20110701
  8. METHYLPREDNISOLONE. [Interacting]
     Active Substance: METHYLPREDNISOLONE
     Indication: ANTISYNTHETASE SYNDROME
  9. IBANDRONATE MONOSODIUM MONOHYDRATE [Concomitant]
     Indication: POLYMYOSITIS
     Dosage: 150 MG, QD
     Dates: start: 20110701
  10. LEVOFLOXACIN. [Suspect]
     Active Substance: LEVOFLOXACIN
     Indication: UPPER RESPIRATORY TRACT INFECTION
     Dosage: 500 MG, BID

REACTIONS (6)
  - Tendon rupture [Recovering/Resolving]
  - Gait inability [Recovering/Resolving]
  - Haemarthrosis [Recovering/Resolving]
  - Swelling [Recovering/Resolving]
  - Tendon disorder [Recovering/Resolving]
  - Tendon pain [Recovering/Resolving]
